FAERS Safety Report 5777161-5 (Version None)
Quarter: 2008Q2

REPORT INFORMATION
  Report Type: 
  Country: None (occurrence: None)
  Receive Date: 20080617
  Receipt Date: 20080617
  Transmission Date: 20081010
  Serious: Yes (Other)
  Sender: FDA-Public Use
  Company Number: None

PATIENT
  Age: 30 Year
  Sex: Male
  Weight: 97.5234 kg

DRUGS (1)
  1. BUDEPRION XL 300MG TEVA [Suspect]
     Indication: DEPRESSION
     Dosage: 300MG ONCE DAILY PO
     Route: 048
     Dates: start: 20080101, end: 20080601

REACTIONS (7)
  - DEPRESSED MOOD [None]
  - DRUG INEFFECTIVE [None]
  - INSOMNIA [None]
  - IRRITABILITY [None]
  - THERAPEUTIC RESPONSE UNEXPECTED WITH DRUG SUBSTITUTION [None]
  - VISION BLURRED [None]
  - WEIGHT INCREASED [None]
